FAERS Safety Report 9712800 (Version 1)
Quarter: 2013Q4

REPORT INFORMATION
  Report Type: Spontaneous
  Country: US (occurrence: US)
  Receive Date: 20131126
  Receipt Date: 20131126
  Transmission Date: 20140711
  Serious: No
  Sender: FDA-Public Use
  Company Number: US-BRISTOL-MYERS SQUIBB COMPANY-19246792

PATIENT
  Age: 58 Year
  Sex: Female

DRUGS (3)
  1. BYDUREON [Suspect]
     Dosage: PRESCRIPTION#:6104088-0241
     Dates: start: 2013
  2. LISINOPRIL [Concomitant]
     Indication: HYPERTENSION
  3. DIGOXIN [Concomitant]
     Indication: HYPERTENSION

REACTIONS (5)
  - Injection site swelling [Unknown]
  - Injection site pruritus [Unknown]
  - Injection site erythema [Unknown]
  - Fatigue [Recovering/Resolving]
  - Urticaria [Recovering/Resolving]
